FAERS Safety Report 14653410 (Version 2)
Quarter: 2018Q2

REPORT INFORMATION
  Report Type: Spontaneous
  Country: US (occurrence: US)
  Receive Date: 20180319
  Receipt Date: 20180430
  Transmission Date: 20180711
  Serious: Yes (Hospitalization)
  Sender: FDA-Public Use
  Company Number: US-JNJFOC-20180310652

PATIENT
  Age: 84 Year
  Sex: Male
  Weight: 81.19 kg

DRUGS (5)
  1. XARELTO [Suspect]
     Active Substance: RIVAROXABAN
     Indication: ATRIAL FLUTTER
     Dosage: FOR 3 WEEKS
     Route: 048
     Dates: start: 20160929, end: 20161104
  2. XARELTO [Suspect]
     Active Substance: RIVAROXABAN
     Indication: CEREBROVASCULAR ACCIDENT PROPHYLAXIS
     Dosage: FOR 3 WEEKS
     Route: 048
     Dates: start: 20160929, end: 20161104
  3. XARELTO [Suspect]
     Active Substance: RIVAROXABAN
     Indication: THROMBOSIS PROPHYLAXIS
     Dosage: FOR 3 WEEKS
     Route: 048
     Dates: start: 20160929, end: 20161104
  4. ASPIRIN. [Suspect]
     Active Substance: ASPIRIN
     Indication: CORONARY ARTERY DISEASE
     Route: 048
     Dates: end: 201611
  5. XARELTO [Suspect]
     Active Substance: RIVAROXABAN
     Indication: ATRIAL FIBRILLATION
     Dosage: FOR 3 WEEKS
     Route: 048
     Dates: start: 20160929, end: 20161104

REACTIONS (1)
  - Haemorrhagic arteriovenous malformation [Recovered/Resolved]

NARRATIVE: CASE EVENT DATE: 201611
